FAERS Safety Report 7610288-1 (Version None)
Quarter: 2011Q3

REPORT INFORMATION
  Report Type: 
  Country: None (occurrence: None)
  Receive Date: 20110713
  Receipt Date: 20110713
  Transmission Date: 20111222
  Serious: Yes (Hospitalization, Other)
  Sender: FDA-Public Use
  Company Number: None

PATIENT
  Sex: Female
  Weight: 78.9259 kg

DRUGS (2)
  1. HYDRALAZINE HCL 25MG TAB [Suspect]
  2. HYDRALAZINE HCL 25MG TAB [Suspect]
     Indication: BLOOD PRESSURE
     Dosage: 1 TWICE A DAY MOUTH
     Route: 048

REACTIONS (3)
  - CHEST DISCOMFORT [None]
  - FEELING ABNORMAL [None]
  - PAIN IN EXTREMITY [None]
